FAERS Safety Report 21637331 (Version 1)
Quarter: 2022Q4

REPORT INFORMATION
  Report Type: Report from Study
  Country: US (occurrence: US)
  Receive Date: 20221124
  Receipt Date: 20221124
  Transmission Date: 20230113
  Serious: Yes (Other)
  Sender: FDA-Public Use
  Company Number: US-BRISTOL-MYERS SQUIBB COMPANY-2022-096914

PATIENT
  Age: 45 Year
  Sex: Male
  Weight: 111 kg

DRUGS (10)
  1. REVLIMID [Suspect]
     Active Substance: LENALIDOMIDE
     Indication: Plasma cell myeloma
     Dosage: A3763A EXPIRY DATE: 30-SEP-2024
     Route: 048
     Dates: start: 20191002
  2. REVLIMID [Suspect]
     Active Substance: LENALIDOMIDE
     Route: 048
  3. ASPIRIN [Suspect]
     Active Substance: ASPIRIN
     Indication: Product used for unknown indication
     Route: 065
  4. TESTOSTERONE [Concomitant]
     Active Substance: TESTOSTERONE
  5. XANAX XR [Concomitant]
     Active Substance: ALPRAZOLAM
  6. VALIUM [Concomitant]
     Active Substance: DIAZEPAM
  7. PREVALITE [Concomitant]
     Active Substance: CHOLESTYRAMINE
  8. GLICLAZIDE [Concomitant]
     Active Substance: GLICLAZIDE
  9. FLONASE ALLERGY RELIEF [Concomitant]
     Active Substance: FLUTICASONE PROPIONATE
  10. NOVOLOG [Concomitant]
     Active Substance: INSULIN ASPART

REACTIONS (6)
  - Diarrhoea [Unknown]
  - Bile acid malabsorption [Unknown]
  - Thrombocytopenia [Unknown]
  - Skin discolouration [Unknown]
  - Injury [Unknown]
  - Eczema [Unknown]

NARRATIVE: CASE EVENT DATE: 20221114
